FAERS Safety Report 6022576-3 (Version None)
Quarter: 2008Q4

REPORT INFORMATION
  Report Type: 
  Country: None (occurrence: None)
  Receive Date: 20081230
  Receipt Date: 20081224
  Transmission Date: 20090506
  Serious: Yes (Hospitalization)
  Sender: FDA-Public Use
  Company Number: US-BIOGENIDEC-2008BI028084

PATIENT
  Age: 53 Year
  Sex: Female
  Weight: 45 kg

DRUGS (8)
  1. TYSABRI [Suspect]
     Indication: MULTIPLE SCLEROSIS
     Route: 042
     Dates: start: 20080103, end: 20080812
  2. BACLOFEN [Concomitant]
     Indication: MUSCLE SPASMS
  3. WATER PILL (NOS) [Concomitant]
  4. PRILOSEC [Concomitant]
  5. MULTI-VITAMIN [Concomitant]
  6. CALCIUM [Concomitant]
  7. ACETAMINOPHEN [Concomitant]
  8. FOSAMAX [Concomitant]

REACTIONS (6)
  - ASTHENIA [None]
  - BALANCE DISORDER [None]
  - CRYING [None]
  - EAR PAIN [None]
  - STRESS [None]
  - VOLVULUS [None]
